FAERS Safety Report 23678611 (Version 2)
Quarter: 2024Q2

REPORT INFORMATION
  Report Type: Report from Study
  Country: US (occurrence: US)
  Receive Date: 20240327
  Receipt Date: 20240527
  Transmission Date: 20240716
  Serious: No
  Sender: FDA-Public Use
  Company Number: US-AstraZeneca-CH-00590699A

PATIENT
  Age: 34 Year
  Sex: Female

DRUGS (2)
  1. SOLIRIS [Suspect]
     Active Substance: ECULIZUMAB
     Indication: Atypical haemolytic uraemic syndrome
     Dosage: UNK, EVERY 6 WEEKS
     Route: 042
  2. MENINGOCOCCAL POLYSACCHARIDE VACCINE, GROUPS A, C, Y,W135 COMBINED [Suspect]
     Active Substance: MENINGOCOCCAL POLYSACCHARIDE VACCINE, GROUPS A, C, Y,W135 COMBINED
     Indication: Immunisation
     Route: 065

REACTIONS (3)
  - Swelling face [Recovered/Resolved]
  - Eye swelling [Recovered/Resolved]
  - Illness [Recovered/Resolved]

NARRATIVE: CASE EVENT DATE: 20240124
